FAERS Safety Report 15029028 (Version 1)
Quarter: 2018Q2

REPORT INFORMATION
  Report Type: Spontaneous
  Country: ZA (occurrence: ZA)
  Receive Date: 20180619
  Receipt Date: 20180619
  Transmission Date: 20180711
  Serious: Yes (Other)
  Sender: FDA-Public Use
  Company Number: ZA-PFIZER INC-2018244798

PATIENT
  Age: 82 Year
  Sex: Female

DRUGS (1)
  1. ASPAVOR [Suspect]
     Active Substance: ATORVASTATIN

REACTIONS (2)
  - Brain injury [Unknown]
  - Cerebrovascular accident [Unknown]

NARRATIVE: CASE EVENT DATE: 20160627
